FAERS Safety Report 8277215 (Version 3)
Quarter: 2012Q4

REPORT INFORMATION
  Report Type: 
  Country: CN (occurrence: CN)
  Receive Date: 20111206
  Receipt Date: 20120905
  Transmission Date: 20130627
  Serious: Yes (Other)
  Sender: FDA-Public Use
  Company Number: CN-ASTRAZENECA-2011SE72625

PATIENT
  Age: 38 Year
  Sex: Male
  Weight: 55.8 kg

DRUGS (1)
  1. LOSEC [Suspect]
     Indication: GASTRIC ULCER
     Route: 048
     Dates: start: 20111001, end: 20111101

REACTIONS (3)
  - Dizziness [Recovering/Resolving]
  - White blood cell count decreased [Recovering/Resolving]
  - Neutrophil count decreased [Recovering/Resolving]
